FAERS Safety Report 10387874 (Version 1)
Quarter: 2014Q3

REPORT INFORMATION
  Report Type: Spontaneous
  Country: GB (occurrence: None)
  Receive Date: 20140813
  Receipt Date: 20140813
  Transmission Date: 20150326
  Serious: Yes (Other)
  Sender: FDA-Public Use
  Company Number: AXC-2014-000487

PATIENT
  Age: 27 Year
  Sex: Female

DRUGS (1)
  1. NITROGLYCERIN. [Suspect]
     Active Substance: NITROGLYCERIN
     Indication: ANAL FISSURE
     Route: 061
     Dates: start: 2014, end: 2014

REACTIONS (5)
  - Dizziness [None]
  - Migraine [None]
  - Nausea [None]
  - Disturbance in attention [None]
  - Ocular discomfort [None]

NARRATIVE: CASE EVENT DATE: 20140613
